FAERS Safety Report 4508926-5 (Version None)
Quarter: 2004Q4

REPORT INFORMATION
  Report Type: 
  Country: None (occurrence: None)
  Receive Date: 20041123
  Receipt Date: 20041007
  Transmission Date: 20050328
  Serious: Yes (Other)
  Sender: FDA-Public Use
  Company Number: GB-GLAXOSMITHKLINE-B0347439A

PATIENT
  Age: 89 Year
  Sex: Male
  Weight: 64 kg

DRUGS (6)
  1. AVANDIA [Suspect]
     Indication: DIABETES MELLITUS NON-INSULIN-DEPENDENT
     Dates: start: 20040726, end: 20040929
  2. METFORMIN [Concomitant]
     Dosage: 500MG TWICE PER DAY
     Route: 048
  3. FUROSEMIDE [Concomitant]
     Dosage: 40MG PER DAY
     Route: 048
  4. ASPIRIN [Concomitant]
  5. DIGOXIN [Concomitant]
  6. IRBESARTAN [Concomitant]

REACTIONS (3)
  - GAMMA-GLUTAMYLTRANSFERASE INCREASED [None]
  - JAUNDICE [None]
  - LIVER FUNCTION TEST ABNORMAL [None]
